FAERS Safety Report 4697633-4 (Version None)
Quarter: 2005Q2

REPORT INFORMATION
  Report Type: 
  Country: None (occurrence: None)
  Receive Date: 20050620
  Receipt Date: 20040630
  Transmission Date: 20051028
  Serious: Yes (Hospitalization)
  Sender: FDA-Public Use
  Company Number: 200414631US

PATIENT
  Age: 34 Year
  Sex: Female
  Weight: 100 kg

DRUGS (15)
  1. LANTUS [Suspect]
     Indication: HYPERGLYCAEMIA
     Dosage: 15 U HS
     Dates: start: 20040610
  2. LANTUS [Suspect]
     Indication: HYPERGLYCAEMIA
     Dosage: 30 U
     Dates: start: 20040601, end: 20040601
  3. LANTUS [Suspect]
     Indication: HYPERGLYCAEMIA
     Dosage: 40 U
     Dates: start: 20040601, end: 20040601
  4. LANTUS [Suspect]
     Indication: HYPERGLYCAEMIA
     Dosage: 60 U
     Dates: start: 20040601, end: 20040601
  5. LANTUS [Suspect]
     Indication: HYPERGLYCAEMIA
     Dosage: 70 U
     Dates: start: 20040601, end: 20040601
  6. LANTUS [Suspect]
     Indication: HYPERGLYCAEMIA
     Dosage: 45 U BID SC
     Route: 058
     Dates: start: 20040601
  7. MULTIPLE ANTIBIOTICS NOS [Concomitant]
  8. LOVENOX [Concomitant]
  9. PHENOBARBITAL [Concomitant]
  10. PHENYTOIN SODIUM [Concomitant]
  11. TOPAMAX [Concomitant]
  12. METFORMIN [Concomitant]
  13. DEPAKOTE [Concomitant]
  14. LEVETIRACETAM (KEPPRA) [Concomitant]
  15. REGULAR INSULIN [Concomitant]

REACTIONS (1)
  - BLOOD GLUCOSE INCREASED [None]
